FAERS Safety Report 5983994-2 (Version None)
Quarter: 2008Q4

REPORT INFORMATION
  Report Type: 
  Country: None (occurrence: None)
  Receive Date: 20081126
  Receipt Date: 20080714
  Transmission Date: 20090506
  Serious: Yes (Other)
  Sender: FDA-Public Use
  Company Number: 2008BH001967

PATIENT
  Age: 32 Year
  Sex: Male

DRUGS (2)
  1. DIANEAL [Suspect]
     Indication: RENAL FAILURE CHRONIC
     Dosage: 18 L; EVERY DAY; IP
     Route: 033
     Dates: start: 20041101
  2. DIANEAL [Suspect]
     Indication: RENAL FAILURE CHRONIC
     Dosage: PRN; IP
     Route: 033
     Dates: start: 20041101

REACTIONS (1)
  - PERITONITIS BACTERIAL [None]
